FAERS Safety Report 14851375 (Version 2)
Quarter: 2018Q2

REPORT INFORMATION
  Report Type: Spontaneous
  Country: CZ (occurrence: CZ)
  Receive Date: 20180507
  Receipt Date: 20180604
  Transmission Date: 20180711
  Serious: Yes (Life-Threatening, Hospitalization, Other)
  Sender: FDA-Public Use
  Company Number: CZ-BRISTOL-MYERS SQUIBB COMPANY-BMS-2018-038209

PATIENT
  Age: 80 Year
  Sex: Female

DRUGS (2)
  1. WARFARIN SODIUM. [Suspect]
     Active Substance: WARFARIN SODIUM
     Indication: ATRIAL FIBRILLATION
     Dosage: UNK
     Route: 065
  2. WARFARIN SODIUM. [Suspect]
     Active Substance: WARFARIN SODIUM
     Indication: ANTICOAGULANT THERAPY
     Dosage: UNK
     Route: 065

REACTIONS (11)
  - Bladder perforation [Unknown]
  - International normalised ratio increased [Recovered/Resolved]
  - Abdominal pain lower [Unknown]
  - Acute kidney injury [Unknown]
  - Haematoma [Unknown]
  - Abdominal wall haematoma [Unknown]
  - Urinary bladder rupture [Unknown]
  - Anuria [Unknown]
  - Erysipelas [Unknown]
  - Anaemia [Unknown]
  - Haematuria [Unknown]
